FAERS Safety Report 13381378 (Version 1)
Quarter: 2017Q1

REPORT INFORMATION
  Report Type: Spontaneous
  Country: US (occurrence: US)
  Receive Date: 20170328
  Receipt Date: 20170328
  Transmission Date: 20170429
  Serious: No
  Sender: FDA-Public Use
  Company Number: None

PATIENT
  Age: 66 Year
  Sex: Female
  Weight: 38.1 kg

DRUGS (1)
  1. 5-FU [Suspect]
     Active Substance: FLUOROURACIL

REACTIONS (2)
  - Device issue [None]
  - Incorrect drug administration duration [None]

NARRATIVE: CASE EVENT DATE: 20170310
